FAERS Safety Report 18490034 (Version 1)
Quarter: 2020Q4

REPORT INFORMATION
  Report Type: Spontaneous
  Country: US (occurrence: US)
  Receive Date: 20201111
  Receipt Date: 20201111
  Transmission Date: 20210114
  Serious: Yes (Other)
  Sender: FDA-Public Use
  Company Number: US-PFIZER INC-2020438451

PATIENT
  Age: 47 Year
  Sex: Female

DRUGS (1)
  1. INLYTA [Suspect]
     Active Substance: AXITINIB
     Dosage: UNK
     Dates: start: 20201026, end: 20201102

REACTIONS (3)
  - Urinary bladder haemorrhage [Unknown]
  - Bladder obstruction [Unknown]
  - Urinary tract infection [Unknown]
